FAERS Safety Report 10163498 (Version 1)
Quarter: 2014Q2

REPORT INFORMATION
  Report Type: Spontaneous
  Country: BR (occurrence: BR)
  Receive Date: 20140509
  Receipt Date: 20140509
  Transmission Date: 20141212
  Serious: Yes (Other)
  Sender: FDA-Public Use
  Company Number: BR-ELI_LILLY_AND_COMPANY-BR201404009837

PATIENT
  Age: 44 Year
  Sex: Male
  Weight: 59 kg

DRUGS (5)
  1. HUMULIN N [Suspect]
     Indication: BLOOD GLUCOSE INCREASED
     Dosage: 20 ML, EACH MORNING
     Route: 058
     Dates: start: 201401
  2. HUMULIN N [Suspect]
     Dosage: 30 IU, EACH MORNING
     Route: 058
  3. HUMULIN N [Suspect]
     Dosage: 30 IU, QD
     Route: 058
  4. HUMULIN N [Suspect]
     Dosage: 30 IU, EACH EVENING
     Route: 058
  5. SINVASTATINA [Concomitant]
     Indication: DIABETES MELLITUS
     Dosage: UNK, UNKNOWN
     Route: 065

REACTIONS (6)
  - Blood glucose increased [Not Recovered/Not Resolved]
  - Injection site nodule [Not Recovered/Not Resolved]
  - Injection site pain [Not Recovered/Not Resolved]
  - Hypersensitivity [Recovered/Resolved]
  - Underdose [Unknown]
  - Blood glucose increased [Not Recovered/Not Resolved]
